FAERS Safety Report 19908146 (Version 1)
Quarter: 2021Q4

REPORT INFORMATION
  Report Type: Spontaneous
  Country: IT (occurrence: IT)
  Receive Date: 20211001
  Receipt Date: 20211001
  Transmission Date: 20220303
  Serious: Yes (Hospitalization, Other)
  Sender: FDA-Public Use
  Company Number: IT-PFIZER INC-202101248662

PATIENT
  Age: 74 Year
  Sex: Female

DRUGS (4)
  1. CARBOPLATIN [Suspect]
     Active Substance: CARBOPLATIN
     Indication: Non-small cell lung cancer
     Dosage: UNK
  2. CARBOPLATIN [Suspect]
     Active Substance: CARBOPLATIN
     Indication: Disease progression
  3. PEMETREXED [Suspect]
     Active Substance: PEMETREXED
     Indication: Disease progression
     Dosage: UNK
  4. PEMETREXED [Suspect]
     Active Substance: PEMETREXED
     Indication: Non-small cell lung cancer

REACTIONS (2)
  - Deep vein thrombosis [Recovering/Resolving]
  - Endocarditis [Unknown]
